FAERS Safety Report 7883783-8 (Version None)
Quarter: 2011Q4

REPORT INFORMATION
  Report Type: 
  Country: None (occurrence: None)
  Receive Date: 20111102
  Receipt Date: 20111024
  Transmission Date: 20120403
  Serious: Yes (Other)
  Sender: FDA-Public Use
  Company Number: JP-SANOFI-AVENTIS-2011SA070740

PATIENT
  Sex: Male

DRUGS (1)
  1. LASIX [Suspect]
     Route: 065
     Dates: start: 20070101

REACTIONS (1)
  - HYPERAMYLASAEMIA [None]
